FAERS Safety Report 8379358-7 (Version None)
Quarter: 2012Q1

REPORT INFORMATION
  Report Type: 
  Country: None (occurrence: None)
  Receive Date: 20120323
  Receipt Date: 20110316
  Transmission Date: 20120608
  Serious: Yes (Other)
  Sender: FDA-Public Use
  Company Number: 163-21880-11032054

PATIENT
  Age: 51 Year
  Sex: Female

DRUGS (4)
  1. REVLIMID [Suspect]
     Indication: MULTIPLE MYELOMA
     Dosage: 10 MG, DAILY X 21 DAYS, PO
     Route: 048
     Dates: start: 20110203, end: 20110305
  2. SYNTHROID [Concomitant]
  3. GABAPENTIN [Concomitant]
  4. BYSTOLIC (NEBIVOLOL HYDROCHLORIDE) (UNKNOWN) [Concomitant]

REACTIONS (1)
  - PNEUMONIA [None]
